FAERS Safety Report 11179955 (Version 1)
Quarter: 2015Q2

REPORT INFORMATION
  Report Type: Spontaneous
  Country: US (occurrence: US)
  Receive Date: 20150611
  Receipt Date: 20150611
  Transmission Date: 20150821
  Serious: No
  Sender: FDA-Public Use
  Company Number: US-TEVA-555208USA

PATIENT
  Age: 51 Year
  Sex: Female

DRUGS (1)
  1. CAPECITABINE. [Suspect]
     Active Substance: CAPECITABINE
     Dosage: 3 TABLETS TWICE A DAY WITH FOOD FOR 14 DAYS ON, 7 DAYS REST, THEN REPEAT
     Route: 048

REACTIONS (2)
  - Pain in extremity [Unknown]
  - Vaginal erosion [Unknown]
